FAERS Safety Report 6625668-0 (Version None)
Quarter: 2010Q1

REPORT INFORMATION
  Report Type: 
  Country: None (occurrence: None)
  Receive Date: 20100310
  Receipt Date: 20100303
  Transmission Date: 20100710
  Serious: Yes (Death, Other)
  Sender: FDA-Public Use
  Company Number: FR-BRISTOL-MYERS SQUIBB COMPANY-15000201

PATIENT
  Age: 47 Year
  Sex: Male

DRUGS (1)
  1. ABILIFY [Suspect]

REACTIONS (4)
  - HEADACHE [None]
  - HEPATIC CIRRHOSIS [None]
  - SUDDEN DEATH [None]
  - VARICES OESOPHAGEAL [None]
